FAERS Safety Report 6670452-5 (Version None)
Quarter: 2010Q2

REPORT INFORMATION
  Report Type: 
  Country: None (occurrence: None)
  Receive Date: 20100407
  Receipt Date: 20100329
  Transmission Date: 20101027
  Serious: No
  Sender: FDA-Public Use
  Company Number: US-BIOGENIDEC-2010BI003097

PATIENT
  Sex: Female

DRUGS (2)
  1. TYSABRI [Suspect]
     Indication: MULTIPLE SCLEROSIS
     Route: 042
     Dates: start: 20080401
  2. BETASERON [Concomitant]
     Indication: MULTIPLE SCLEROSIS

REACTIONS (6)
  - ABDOMINAL PAIN UPPER [None]
  - HEADACHE [None]
  - NASOPHARYNGITIS [None]
  - PERONEAL NERVE PALSY [None]
  - PRURITUS [None]
  - VEIN DISORDER [None]
